FAERS Safety Report 10990631 (Version 1)
Quarter: 2015Q2

REPORT INFORMATION
  Report Type: Spontaneous
  Country: NL (occurrence: NL)
  Receive Date: 20150406
  Receipt Date: 20150406
  Transmission Date: 20150821
  Serious: Yes (Hospitalization)
  Sender: FDA-Public Use
  Company Number: NL-009507513-1503NLD014066

PATIENT
  Age: 70 Year
  Sex: Female

DRUGS (10)
  1. OMEPRAZOLE MAGNESIUM. [Concomitant]
     Active Substance: OMEPRAZOLE MAGNESIUM
     Dosage: ORAL 07:00 1 UNIT
     Route: 048
  2. FUROSEMIDE. [Concomitant]
     Active Substance: FUROSEMIDE
     Dosage: ORAL 07:00 1 UNIT
     Route: 048
  3. METFORMIN [Concomitant]
     Active Substance: METFORMIN HYDROCHLORIDE
     Dosage: ORAL 07:00 1 UNIT
     Route: 048
  4. GLIMEPIRIDE. [Concomitant]
     Active Substance: GLIMEPIRIDE
     Dosage: ORAL 07:00/19:00 1 UNIT
     Route: 048
  5. LEXAPRO [Concomitant]
     Active Substance: ESCITALOPRAM OXALATE
     Dosage: 07:00 1 UNIT
     Route: 048
  6. ACENOCOUMAROL [Concomitant]
     Active Substance: ACENOCOUMAROL
     Dosage: AS PRESCRIBED
     Route: 048
  7. METFORMIN [Concomitant]
     Active Substance: METFORMIN HYDROCHLORIDE
     Dosage: ORAL 07:00 / 17:00 / 22:00
     Route: 048
  8. OXAZEPAM. [Concomitant]
     Active Substance: OXAZEPAM
     Dosage: ORAL IF NEEDED 1 UNIT
     Route: 048
  9. SIMVASTATIN. [Suspect]
     Active Substance: SIMVASTATIN
     Indication: PRODUCT USED FOR UNKNOWN INDICATION
     Dosage: 1 TIME A DAY 1 UNIT(S)
     Route: 048
     Dates: start: 20150112, end: 20150303
  10. LANOXIN PG [Concomitant]
     Dosage: ORAL 07:00 1 UNIT
     Route: 048

REACTIONS (2)
  - Oedema peripheral [Recovering/Resolving]
  - Liver disorder [Recovering/Resolving]

NARRATIVE: CASE EVENT DATE: 20150226
